FAERS Safety Report 6058473-7 (Version None)
Quarter: 2009Q1

REPORT INFORMATION
  Report Type: 
  Country: None (occurrence: None)
  Receive Date: 20090128
  Receipt Date: 20090128
  Transmission Date: 20090719
  Serious: No
  Sender: FDA-Public Use
  Company Number: None

PATIENT
  Age: 51 Year
  Sex: Male
  Weight: 105.23 kg

DRUGS (1)
  1. VARENICLINE [Suspect]
     Dosage: 1 MG, MG BID PO
     Route: 048
     Dates: start: 20080130, end: 20080416

REACTIONS (1)
  - NIGHTMARE [None]
